FAERS Safety Report 8244218-9 (Version None)
Quarter: 2012Q1

REPORT INFORMATION
  Report Type: 
  Country: None (occurrence: None)
  Receive Date: 20120329
  Receipt Date: 20120316
  Transmission Date: 20120608
  Serious: No
  Sender: FDA-Public Use
  Company Number: US-B.I. PHARMACEUTICALS,INC./RIDGEFIELD-2012-BP-05119BP

PATIENT
  Sex: Female

DRUGS (12)
  1. PRADAXA [Suspect]
     Dosage: 300 MG
     Route: 048
     Dates: start: 20120101, end: 20120108
  2. LISINOPRIL [Concomitant]
     Indication: HYPERTENSION
     Route: 048
  3. OMEGA 3 RED [Concomitant]
     Indication: SUPPLEMENTATION THERAPY
     Route: 048
  4. PRADAXA [Suspect]
     Indication: ATRIAL FIBRILLATION
     Dosage: 150 MG
     Route: 048
     Dates: start: 20101201, end: 20101231
  5. PRADAXA [Suspect]
     Dosage: 150 MG
     Route: 048
     Dates: start: 20110108
  6. METOPROLOL SUCCINATE [Concomitant]
     Indication: HYPERTENSION
     Route: 048
  7. CALTRATE WITH VITAMIN B [Concomitant]
     Indication: SUPPLEMENTATION THERAPY
     Route: 048
  8. SPIRONOLACTONE [Concomitant]
     Route: 048
  9. DIGOXIN [Concomitant]
     Indication: CARDIAC DISORDER
     Route: 048
  10. LIPITOR [Concomitant]
     Indication: BLOOD CHOLESTEROL INCREASED
     Route: 048
  11. TORSEMIDE [Concomitant]
     Route: 048
  12. CITRACAL [Concomitant]
     Route: 048

REACTIONS (2)
  - VAGINAL HAEMORRHAGE [None]
  - INCORRECT DOSE ADMINISTERED [None]
